FAERS Safety Report 6067746-3 (Version None)
Quarter: 2009Q1

REPORT INFORMATION
  Report Type: 
  Country: None (occurrence: None)
  Receive Date: 20090205
  Receipt Date: 20090129
  Transmission Date: 20090719
  Serious: Yes (Hospitalization)
  Sender: FDA-Public Use
  Company Number: US-GENENTECH-276486

PATIENT
  Sex: Female
  Weight: 131.8 kg

DRUGS (3)
  1. AVASTIN [Suspect]
     Indication: BREAST CANCER METASTATIC
     Dosage: 15 MG/KG, UNK
     Route: 042
     Dates: start: 20090107
  2. PACLITAXEL PROTEIN-BOUND/ALBUMIN [Suspect]
     Indication: BREAST CANCER METASTATIC
     Dosage: 125 MG/M2, UNK
     Route: 042
     Dates: start: 20090107
  3. GEMCITABINE [Suspect]
     Indication: BREAST CANCER METASTATIC
     Dosage: 1000 MG/M2, UNK
     Route: 042
     Dates: start: 20090107

REACTIONS (2)
  - ASPARTATE AMINOTRANSFERASE INCREASED [None]
  - NEUTROPHIL COUNT DECREASED [None]
